FAERS Safety Report 23122753 (Version 2)
Quarter: 2024Q4

REPORT INFORMATION
  Report Type: Spontaneous
  Country: US (occurrence: US)
  Receive Date: 20231030
  Receipt Date: 20241106
  Transmission Date: 20250114
  Serious: No
  Sender: UCB
  Company Number: US-UCBSA-2023036569

PATIENT
  Age: 7 Decade
  Sex: Male

DRUGS (5)
  1. VIMPAT [Suspect]
     Active Substance: LACOSAMIDE
     Indication: Chronic inflammatory demyelinating polyradiculoneuropathy
     Dosage: UNK
  2. VIMPAT [Suspect]
     Active Substance: LACOSAMIDE
     Indication: Neuromyotonia
  3. VIMPAT [Suspect]
     Active Substance: LACOSAMIDE
     Indication: Off label use
  4. RITUXIMAB [Concomitant]
     Active Substance: RITUXIMAB
     Indication: Chronic inflammatory demyelinating polyradiculoneuropathy
     Dosage: UNK
  5. RITUXIMAB [Concomitant]
     Active Substance: RITUXIMAB
     Indication: Neuromyotonia

REACTIONS (1)
  - No adverse event [Unknown]
